FAERS Safety Report 14329052 (Version 3)
Quarter: 2018Q1

REPORT INFORMATION
  Report Type: Report from Study
  Country: US (occurrence: US)
  Receive Date: 20171227
  Receipt Date: 20180226
  Transmission Date: 20180509
  Serious: Yes (Hospitalization, Other)
  Sender: FDA-Public Use
  Company Number: US-AMGEN-USASP2017189389

PATIENT
  Age: 56 Year
  Sex: Male

DRUGS (3)
  1. NPLATE [Suspect]
     Active Substance: ROMIPLOSTIM
     Indication: THROMBOCYTOPENIA
     Dosage: 3 MUG/KG, (83 MUG), QWK
     Route: 065
     Dates: start: 201707
  2. PREDNISONE. [Concomitant]
     Active Substance: PREDNISONE
     Dosage: 1 MG, QD
  3. PREDNISONE. [Concomitant]
     Active Substance: PREDNISONE
     Dosage: 40 MG, QD

REACTIONS (3)
  - Platelet count decreased [Not Recovered/Not Resolved]
  - Platelet count abnormal [Recovering/Resolving]
  - Prostate cancer [Unknown]

NARRATIVE: CASE EVENT DATE: 2017
